FAERS Safety Report 8536482-3 (Version None)
Quarter: 2012Q3

REPORT INFORMATION
  Report Type: 
  Country: None (occurrence: None)
  Receive Date: 20120725
  Receipt Date: 20120718
  Transmission Date: 20120928
  Serious: Yes (Hospitalization)
  Sender: FDA-Public Use
  Company Number: PHHY2012FR062521

PATIENT
  Sex: Male

DRUGS (6)
  1. TASIGNA [Suspect]
     Indication: CHRONIC MYELOID LEUKAEMIA
     Dosage: 400 MG, BID
     Route: 048
     Dates: start: 20080218
  2. EZETIMIBE [Concomitant]
     Indication: HYPERCHOLESTEROLAEMIA
  3. TEMERIT DUO [Concomitant]
     Indication: HYPERTENSION
     Dosage: 5 MG, DAILY
     Route: 048
  4. CRESTOR [Concomitant]
     Indication: HYPERCHOLESTEROLAEMIA
     Dosage: 10 MG, DAILY
  5. HYPERIUM [Concomitant]
     Indication: HYPERTENSION
     Dosage: UNK
  6. ALLOPURINOL [Concomitant]
     Indication: HYPERURICAEMIA
     Dosage: 1 DF, DAILY
     Route: 048

REACTIONS (4)
  - CAROTID ARTERY STENOSIS [None]
  - DYSARTHRIA [None]
  - DIZZINESS [None]
  - PARAESTHESIA [None]
